FAERS Safety Report 6608431-6 (Version None)
Quarter: 2010Q1

REPORT INFORMATION
  Report Type: 
  Country: None (occurrence: None)
  Receive Date: 20100301
  Receipt Date: 20100223
  Transmission Date: 20100710
  Serious: Yes (Other)
  Sender: FDA-Public Use
  Company Number: PA-ELI_LILLY_AND_COMPANY-PA201002001543

PATIENT
  Age: 47 Year
  Sex: Female
  Weight: 112.2 kg

DRUGS (9)
  1. BYETTA [Suspect]
     Indication: TYPE 2 DIABETES MELLITUS
     Dosage: 5 UG, 2/D
     Route: 065
     Dates: start: 20091201, end: 20100101
  2. BYETTA [Suspect]
     Dosage: 10 UG, 2/D
     Route: 065
     Dates: start: 20100101, end: 20100129
  3. INSULIN GLARGINE [Concomitant]
     Indication: METABOLIC DISORDER
     Dosage: 10 IU, DAILY (1/D)
     Route: 065
  4. INSULIN GLARGINE [Concomitant]
     Dosage: 15 IU, DAILY (1/D)
     Route: 065
  5. DIAMICRON [Concomitant]
     Dosage: UNK, DAILY (1/D)
     Route: 065
  6. METFORMIN HYDROCHLORIDE [Concomitant]
     Dosage: 1000 MG, 3/D
     Route: 065
  7. SIBUTRAMINE [Concomitant]
     Dosage: UNK, UNKNOWN
     Route: 065
  8. HIPERLIPEN [Concomitant]
     Dosage: UNK, UNKNOWN
     Route: 065
  9. ATACAND [Concomitant]
     Dosage: UNK, UNKNOWN
     Route: 065

REACTIONS (4)
  - NAUSEA [None]
  - OFF LABEL USE [None]
  - RENAL FAILURE [None]
  - WEIGHT DECREASED [None]
